FAERS Safety Report 4881261-1 (Version None)
Quarter: 2005Q4

REPORT INFORMATION
  Report Type: 
  Country: None (occurrence: None)
  Receive Date: 20051201
  Receipt Date: 20050728
  Transmission Date: 20060501
  Serious: No
  Sender: FDA-Public Use
  Company Number: 2005PV000669

PATIENT
  Age: 60 Year
  Sex: Female
  Weight: 145.151 kg

DRUGS (11)
  1. BYETTA [Suspect]
     Indication: DIABETES MELLITUS NON-INSULIN-DEPENDENT
     Dosage: 5 MCG;BID;SC
     Route: 058
     Dates: start: 20050720
  2. GLUCOVANCE [Concomitant]
  3. CLONIDINE [Concomitant]
  4. TORSEMIDE [Concomitant]
  5. DIOVAN [Concomitant]
  6. ASCORBIC ACID [Concomitant]
  7. FOLIC ACID [Concomitant]
  8. VITAMIN E [Concomitant]
  9. GARLIC [Concomitant]
  10. LANTUS [Concomitant]
  11. AVANDIA [Concomitant]

REACTIONS (1)
  - BLOOD GLUCOSE INCREASED [None]
